FAERS Safety Report 25779380 (Version 1)
Quarter: 2025Q3

REPORT INFORMATION
  Report Type: Spontaneous
  Country: US (occurrence: US)
  Receive Date: 20250909
  Receipt Date: 20250909
  Transmission Date: 20251021
  Serious: No
  Sender: BAYER HEALTHCARE PHARMACEUTICALS INC.
  Company Number: US-BAYER-2025A118523

PATIENT
  Age: 32 Year
  Sex: Female

DRUGS (2)
  1. MIRENA [Suspect]
     Active Substance: LEVONORGESTREL
     Indication: Intrauterine contraception
     Dosage: 20?G/DAY
     Route: 015
     Dates: start: 202106
  2. DUPIXENT [Concomitant]
     Active Substance: DUPILUMAB
     Dates: start: 2025

REACTIONS (2)
  - Adverse event [None]
  - Rash [Recovered/Resolved]

NARRATIVE: CASE EVENT DATE: 20250101
